FAERS Safety Report 16777889 (Version 1)
Quarter: 2019Q3

REPORT INFORMATION
  Report Type: Spontaneous
  Country: US (occurrence: US)
  Receive Date: 20190905
  Receipt Date: 20190905
  Transmission Date: 20191005
  Serious: Yes (Hospitalization, Other)
  Sender: FDA-Public Use
  Company Number: US-AMNEAL PHARMACEUTICALS-2019-AMRX-01773

PATIENT
  Age: 86 Year
  Sex: Female

DRUGS (2)
  1. CLONIDINE HYDROCHLORIDE. [Suspect]
     Active Substance: CLONIDINE HYDROCHLORIDE
     Indication: PRODUCT USED FOR UNKNOWN INDICATION
     Dosage: UNK
     Route: 048
  2. BACLOFEN. [Suspect]
     Active Substance: BACLOFEN
     Indication: PRODUCT USED FOR UNKNOWN INDICATION
     Dosage: UNK
     Route: 048

REACTIONS (7)
  - Miosis [Recovered/Resolved]
  - Bradypnoea [Recovered/Resolved]
  - Paraesthesia [Recovered/Resolved]
  - Accidental exposure to product [Unknown]
  - Bradycardia [Recovered/Resolved]
  - Lethargy [Recovered/Resolved]
  - Mucosal disorder [Recovered/Resolved]
